FAERS Safety Report 19750798 (Version 1)
Quarter: 2021Q3

REPORT INFORMATION
  Report Type: Report from Study
  Country: IT (occurrence: IT)
  Receive Date: 20210826
  Receipt Date: 20210826
  Transmission Date: 20211014
  Serious: Yes (Life-Threatening)
  Sender: FDA-Public Use
  Company Number: IT-EXELIXIS-XL18421043543

PATIENT
  Age: 67 Year
  Sex: Male
  Weight: 70 kg

DRUGS (13)
  1. LOSARTAN. [Concomitant]
     Active Substance: LOSARTAN
  2. DUROGESIC [Concomitant]
     Active Substance: FENTANYL
  3. DIBASE [Concomitant]
     Active Substance: CHOLECALCIFEROL
  4. LYRICA [Concomitant]
     Active Substance: PREGABALIN
  5. LANSOPRAZOLE. [Concomitant]
     Active Substance: LANSOPRAZOLE
  6. EFFENTORA [Concomitant]
     Active Substance: FENTANYL CITRATE
  7. CIPROXIN [Concomitant]
     Active Substance: CIPROFLOXACIN
  8. XL184 [Suspect]
     Active Substance: CABOZANTINIB
     Indication: THYROID CANCER
     Dosage: 60 MG, QD
     Route: 048
     Dates: start: 20200827, end: 20210712
  9. MEGESTROL ACETATE. [Concomitant]
     Active Substance: MEGESTROL ACETATE
  10. EUTIROX [Concomitant]
     Active Substance: LEVOTHYROXINE SODIUM
  11. ENTACT [Concomitant]
     Active Substance: ESCITALOPRAM OXALATE
  12. ESIDREX [Concomitant]
     Active Substance: HYDROCHLOROTHIAZIDE
  13. ENOXAPARIN [Concomitant]
     Active Substance: ENOXAPARIN

REACTIONS (1)
  - Hypokalaemia [Recovered/Resolved]

NARRATIVE: CASE EVENT DATE: 20210712
